FAERS Safety Report 8034404-5 (Version None)
Quarter: 2012Q1

REPORT INFORMATION
  Report Type: 
  Country: None (occurrence: None)
  Receive Date: 20120110
  Receipt Date: 20120106
  Transmission Date: 20120608
  Serious: Yes (Hospitalization)
  Sender: FDA-Public Use
  Company Number: TR-ELI_LILLY_AND_COMPANY-TR201201002178

PATIENT
  Sex: Male

DRUGS (1)
  1. LISPRO 50LIS50NPL [Suspect]
     Indication: DIABETES MELLITUS
     Dosage: 30 IU, TID
     Route: 058
     Dates: start: 20060101

REACTIONS (1)
  - BLOOD GLUCOSE INCREASED [None]
